FAERS Safety Report 5300940-5 (Version None)
Quarter: 2007Q1

REPORT INFORMATION
  Report Type: 
  Country: None (occurrence: None)
  Receive Date: 20070208
  Receipt Date: 20060601
  Transmission Date: 20070707
  Serious: Yes (Other)
  Sender: FDA-Public Use
  Company Number: PROG00206001815

PATIENT
  Age: 64 Year
  Sex: Female

DRUGS (8)
  1. PROMETRIUM [Suspect]
     Indication: HORMONE REPLACEMENT THERAPY
  2. ESTRATEST [Suspect]
     Indication: HORMONE REPLACEMENT THERAPY
     Dosage: DAILY ORAL
     Route: 048
  3. ESTRATEST [Suspect]
     Indication: MENOPAUSAL SYMPTOMS
     Dosage: DAILY ORAL
     Route: 048
  4. OGEN [Suspect]
     Indication: HORMONE REPLACEMENT THERAPY
     Dosage: DAILY
  5. OGEN [Suspect]
     Indication: MENOPAUSAL SYMPTOMS
     Dosage: DAILY
  6. ORTHO-EST [Suspect]
     Indication: HORMONE REPLACEMENT THERAPY
     Dosage: DAILY
  7. ORTHO-EST [Suspect]
     Indication: NASOPHARYNGITIS
     Dosage: DAILY
  8. PROVERA [Suspect]
     Indication: HORMONE REPLACEMENT THERAPY
     Dosage: DAILY

REACTIONS (1)
  - BREAST CANCER [None]
